FAERS Safety Report 9619669 (Version 2)
Quarter: 2014Q1

REPORT INFORMATION
  Report Type: Spontaneous
  Country: US (occurrence: US)
  Receive Date: 20131014
  Receipt Date: 20140116
  Transmission Date: 20141002
  Serious: Yes (Other)
  Sender: FDA-Public Use
  Company Number: US-PFIZER INC-2013293908

PATIENT
  Age: 59 Year
  Sex: Male
  Weight: 31.29 kg

DRUGS (2)
  1. LYRICA [Suspect]
     Indication: ARTHRALGIA
     Dosage: 150 MG, 2X/DAY
     Route: 048
     Dates: start: 2013, end: 2013
  2. LYRICA [Suspect]
     Indication: FIBROMYALGIA

REACTIONS (13)
  - Off label use [Unknown]
  - Suicidal ideation [Not Recovered/Not Resolved]
  - Mental disorder [Not Recovered/Not Resolved]
  - Drug hypersensitivity [Unknown]
  - Drug eruption [Unknown]
  - Rash generalised [Not Recovered/Not Resolved]
  - Rash pruritic [Not Recovered/Not Resolved]
  - Weight increased [Not Recovered/Not Resolved]
  - Malaise [Not Recovered/Not Resolved]
  - Tremor [Not Recovered/Not Resolved]
  - Paraesthesia [Not Recovered/Not Resolved]
  - Back pain [Unknown]
  - Pain [Unknown]
